FAERS Safety Report 18223093 (Version 1)
Quarter: 2020Q3

REPORT INFORMATION
  Report Type: Spontaneous
  Country: FR (occurrence: FR)
  Receive Date: 20200902
  Receipt Date: 20200902
  Transmission Date: 20201103
  Serious: Yes (Death, Other)
  Sender: FDA-Public Use
  Company Number: FR-JNJFOC-20200835576

PATIENT
  Age: 32 Year
  Sex: Female
  Weight: 75 kg

DRUGS (6)
  1. VIMPAT [Suspect]
     Active Substance: LACOSAMIDE
     Indication: FRONTAL LOBE EPILEPSY
     Route: 048
     Dates: start: 20200625
  2. DEPAKINE                           /00228501/ [Suspect]
     Active Substance: VALPROIC ACID
     Indication: FRONTAL LOBE EPILEPSY
     Route: 048
     Dates: start: 20200625
  3. LAMOTRIGINE. [Suspect]
     Active Substance: LAMOTRIGINE
     Indication: FRONTAL LOBE EPILEPSY
     Route: 048
     Dates: start: 20200604
  4. EPITOMAX [Suspect]
     Active Substance: TOPIRAMATE
     Indication: FRONTAL LOBE EPILEPSY
     Route: 048
  5. SERESTA [Suspect]
     Active Substance: OXAZEPAM
     Indication: ANXIETY
     Route: 048
     Dates: start: 20200611
  6. KEPPRA [Suspect]
     Active Substance: LEVETIRACETAM
     Route: 048
     Dates: start: 20200625

REACTIONS (2)
  - Death [Fatal]
  - Rhabdomyolysis [Not Recovered/Not Resolved]

NARRATIVE: CASE EVENT DATE: 20200627
